FAERS Safety Report 5235600-2 (Version None)
Quarter: 2007Q1

REPORT INFORMATION
  Report Type: 
  Country: None (occurrence: None)
  Receive Date: 20061208
  Receipt Date: 20060208
  Transmission Date: 20070707
  Serious: Yes (Other)
  Sender: FDA-Public Use
  Company Number: 2006UW02221

PATIENT
  Sex: Male
  Weight: 86.182 kg

DRUGS (2)
  1. CRESTOR [Suspect]
     Indication: HYPERCHOLESTEROLAEMIA
     Dosage: 40 MG QD PO
     Route: 048
     Dates: start: 20040101
  2. ZETIA [Concomitant]

REACTIONS (1)
  - HYPOTRICHOSIS [None]
